FAERS Safety Report 7500608-0 (Version None)
Quarter: 2011Q2

REPORT INFORMATION
  Report Type: 
  Country: None (occurrence: None)
  Receive Date: 20110524
  Receipt Date: 20100728
  Transmission Date: 20111010
  Serious: No
  Sender: FDA-Public Use
  Company Number: US-NOVEN-ALL1-2010-04053

PATIENT

DRUGS (1)
  1. DAYTRANA [Suspect]
     Dosage: APPLIED ONE 30 MG AND ONE-HALF 30 MG PATCH DAILY
     Route: 062
     Dates: start: 20100101

REACTIONS (3)
  - NO ADVERSE EVENT [None]
  - WRONG TECHNIQUE IN DRUG USAGE PROCESS [None]
  - OVERDOSE [None]
